FAERS Safety Report 8791220 (Version 2)
Quarter: 2013Q1

REPORT INFORMATION
  Report Type: Spontaneous
  Country: PT (occurrence: None)
  Receive Date: 20120911
  Receipt Date: 20130212
  Transmission Date: 20140127
  Serious: Yes (Hospitalization, Disabling)
  Sender: FDA-Public Use
  Company Number: E2B_7158322

PATIENT
  Age: 13 Year
  Sex: Female
  Weight: 43 kg

DRUGS (7)
  1. EUTIROX [Suspect]
     Indication: HYPOTHYROIDISM
     Route: 048
     Dates: start: 2006
  2. CALCIUM CARBONATE [Suspect]
     Indication: RENAL FAILURE CHRONIC
     Route: 048
     Dates: start: 20101130
  3. RESICAL (CALCIUM POLYSTYRENE SULFONATE) POWDER FOR ORAL SUSPENSION) [Suspect]
     Indication: RENAL FAILURE CHRONIC
     Route: 048
     Dates: start: 20101130
  4. BICARBONATO DE SODIO LABESFAL (SODIUM BICARBONATE) (CAPSULE, HARD) [Suspect]
     Indication: RENAL FAILURE CHRONIC
     Route: 048
     Dates: start: 20101130
  5. CATALIP [Suspect]
     Indication: HYPERLIPIDAEMIA
     Route: 048
     Dates: start: 201201, end: 20120604
  6. FERRUM [Suspect]
     Indication: RENAL FAILURE CHRONIC
     Route: 048
     Dates: start: 20101130
  7. ROCALTROL (CALCITRIOL) [Concomitant]

REACTIONS (4)
  - Hepatitis [None]
  - Rhabdomyolysis [None]
  - Hypothyroidism [None]
  - Renal impairment [None]
